FAERS Safety Report 5966226-0 (Version None)
Quarter: 2008Q4

REPORT INFORMATION
  Report Type: 
  Country: None (occurrence: None)
  Receive Date: 20081125
  Receipt Date: 20081117
  Transmission Date: 20090506
  Serious: Yes (Hospitalization)
  Sender: FDA-Public Use
  Company Number: FR-JNJFOC-20040605872

PATIENT
  Sex: Female
  Weight: 54 kg

DRUGS (4)
  1. TOPIRAMATE [Suspect]
     Route: 048
     Dates: start: 20030901, end: 20040501
  2. TOPIRAMATE [Suspect]
     Indication: ALTERED STATE OF CONSCIOUSNESS
     Route: 048
     Dates: start: 20030901, end: 20040501
  3. TOPIRAMATE [Suspect]
     Indication: TEMPORAL LOBE EPILEPSY
     Route: 048
     Dates: start: 20030901, end: 20040501
  4. TEGRETOL [Concomitant]
     Route: 065

REACTIONS (4)
  - AGGRESSION [None]
  - ALTERED VISUAL DEPTH PERCEPTION [None]
  - PERSECUTORY DELUSION [None]
  - PSYCHOTIC DISORDER [None]
